FAERS Safety Report 19424471 (Version 1)
Quarter: 2021Q2

REPORT INFORMATION
  Report Type: Spontaneous
  Country: US (occurrence: US)
  Receive Date: 20210616
  Receipt Date: 20210616
  Transmission Date: 20210717
  Serious: No
  Sender: FDA-Public Use
  Company Number: US-SK LIFE SCIENCE, INC-SKPVG-2021-000390

PATIENT

DRUGS (6)
  1. XCOPRI [Suspect]
     Active Substance: CENOBAMATE
     Indication: EPILEPSY
     Dosage: 12.5 MILLIGRAM, QD, IN THE MORNING
     Route: 048
     Dates: start: 20210307, end: 20210318
  2. XCOPRI [Suspect]
     Active Substance: CENOBAMATE
     Dosage: 100 MILLIGRAM
     Route: 048
  3. XCOPRI [Suspect]
     Active Substance: CENOBAMATE
     Indication: SIMPLE PARTIAL SEIZURES
     Dosage: UNK
     Route: 048
     Dates: start: 20210319
  4. CLOBAZAM. [Concomitant]
     Active Substance: CLOBAZAM
     Indication: PRODUCT USED FOR UNKNOWN INDICATION
     Route: 065
  5. KEPPRA [Concomitant]
     Active Substance: LEVETIRACETAM
     Indication: PRODUCT USED FOR UNKNOWN INDICATION
     Route: 065
  6. VIMPAT [Concomitant]
     Active Substance: LACOSAMIDE
     Indication: PRODUCT USED FOR UNKNOWN INDICATION
     Route: 065

REACTIONS (1)
  - Product dose omission issue [Recovered/Resolved]

NARRATIVE: CASE EVENT DATE: 20210318
